FAERS Safety Report 20016749 (Version 1)
Quarter: 2021Q4

REPORT INFORMATION
  Report Type: Spontaneous
  Country: US (occurrence: None)
  Receive Date: 20211104
  Receipt Date: 20211104
  Transmission Date: 20220303
  Serious: No
  Sender: FDA-Public Use
  Company Number: None

PATIENT
  Age: 71 Year
  Sex: Male

DRUGS (1)
  1. MIRTAZAPINE [Suspect]
     Active Substance: MIRTAZAPINE
     Indication: Post-traumatic stress disorder
     Dosage: FREQUENCY : AS DIRECTED;?
     Route: 048
     Dates: start: 20180301, end: 20210130

REACTIONS (5)
  - Heart rate irregular [None]
  - Chest pain [None]
  - Dyspnoea [None]
  - Angina pectoris [None]
  - Dyspnoea [None]

NARRATIVE: CASE EVENT DATE: 20210120
